FAERS Safety Report 13154059 (Version 1)
Quarter: 2017Q1

REPORT INFORMATION
  Report Type: Report from Study
  Country: US (occurrence: US)
  Receive Date: 20170126
  Receipt Date: 20170126
  Transmission Date: 20170428
  Serious: No
  Sender: FDA-Public Use
  Company Number: US-AMGEN-USASL2016095621

PATIENT
  Age: 54 Year

DRUGS (2)
  1. POMALYST [Concomitant]
     Active Substance: POMALIDOMIDE
     Dosage: UNK
  2. KYPROLIS [Suspect]
     Active Substance: CARFILZOMIB
     Indication: PRODUCT USED FOR UNKNOWN INDICATION
     Dosage: UNK
     Route: 065

REACTIONS (4)
  - Ocular hyperaemia [Unknown]
  - Anaemia [Unknown]
  - Neuropathy peripheral [Unknown]
  - Peripheral swelling [Unknown]
